FAERS Safety Report 5515541-3 (Version None)
Quarter: 2007Q4

REPORT INFORMATION
  Report Type: 
  Country: None (occurrence: None)
  Receive Date: 20071113
  Receipt Date: 20070404
  Transmission Date: 20080405
  Serious: No
  Sender: FDA-Public Use
  Company Number: A0644627A

PATIENT
  Age: 87 Year
  Sex: Male

DRUGS (4)
  1. COREG [Suspect]
     Indication: HYPERTENSION
     Dosage: 25MG TWICE PER DAY
     Route: 048
     Dates: start: 20070306
  2. COZAAR [Concomitant]
  3. GLYCERINE [Concomitant]
  4. LASIX [Concomitant]

REACTIONS (1)
  - DRUG INEFFECTIVE [None]
